FAERS Safety Report 6442532-0 (Version None)
Quarter: 2009Q4

REPORT INFORMATION
  Report Type: 
  Country: None (occurrence: None)
  Receive Date: 20091112
  Receipt Date: 20091029
  Transmission Date: 20100525
  Serious: Yes (Hospitalization)
  Sender: FDA-Public Use
  Company Number: 8054119

PATIENT
  Age: 51 Year
  Sex: Male

DRUGS (2)
  1. KEPPRA [Suspect]
     Dates: start: 20080830, end: 20090830
  2. RIVOTRIL [Suspect]
     Dates: start: 20080830, end: 20090830

REACTIONS (3)
  - PRURITUS [None]
  - SKIN REACTION [None]
  - URTICARIA [None]
